FAERS Safety Report 21869341 (Version 1)
Quarter: 2023Q1

REPORT INFORMATION
  Report Type: Spontaneous
  Country: US (occurrence: US)
  Receive Date: 20230117
  Receipt Date: 20230117
  Transmission Date: 20230418
  Serious: No
  Sender: FDA-Public Use
  Company Number: US-BRISTOL-MYERS SQUIBB COMPANY-2023-007113

PATIENT
  Age: 78 Year
  Sex: Female

DRUGS (1)
  1. POMALYST [Suspect]
     Active Substance: POMALIDOMIDE
     Indication: Plasma cell myeloma
     Dates: start: 20220624

REACTIONS (3)
  - Pruritus [Unknown]
  - Sensory disturbance [Unknown]
  - Dry skin [Unknown]

NARRATIVE: CASE EVENT DATE: 20221230
